FAERS Safety Report 19146608 (Version 1)
Quarter: 2021Q2

REPORT INFORMATION
  Report Type: Spontaneous
  Country: CN (occurrence: CN)
  Receive Date: 20210416
  Receipt Date: 20210416
  Transmission Date: 20210717
  Serious: Yes (Hospitalization, Other)
  Sender: FDA-Public Use
  Company Number: CN-PFIZER INC-2021388030

PATIENT
  Age: 17 Year
  Sex: Female
  Weight: 53 kg

DRUGS (4)
  1. SOLU?MEDROL [Suspect]
     Active Substance: METHYLPREDNISOLONE SODIUM SUCCINATE
     Dosage: 8 MG, 1X/DAY
     Route: 041
     Dates: start: 20210111
  2. COMPOUND GLYCYRRHIZIN INJECTION [Suspect]
     Active Substance: CYSTEINE\GLYCINE\GLYCYRRHIZIN
     Indication: DRUG ERUPTION
     Dosage: 160 MG, 1X/DAY
     Route: 041
     Dates: start: 20201221, end: 20210117
  3. SOLU?MEDROL [Suspect]
     Active Substance: METHYLPREDNISOLONE SODIUM SUCCINATE
     Indication: DRUG ERUPTION
     Dosage: 40 MG, 2X/DAY
     Route: 041
     Dates: start: 20201222, end: 20201230
  4. SOLU?MEDROL [Suspect]
     Active Substance: METHYLPREDNISOLONE SODIUM SUCCINATE
     Dosage: 40 MG, 1X/DAY
     Route: 041
     Dates: start: 20201231, end: 20210111

REACTIONS (3)
  - Hypokalaemia [Recovering/Resolving]
  - Tremor [Recovering/Resolving]
  - Cortisol decreased [Recovering/Resolving]

NARRATIVE: CASE EVENT DATE: 20210105
